FAERS Safety Report 4404630-2 (Version None)
Quarter: 2004Q3

REPORT INFORMATION
  Report Type: 
  Country: None (occurrence: None)
  Receive Date: 20040720
  Receipt Date: 20040707
  Transmission Date: 20050211
  Serious: No
  Sender: FDA-Public Use
  Company Number: 04P-056-0266431-00

PATIENT
  Age: 52 Year
  Sex: Female

DRUGS (2)
  1. TRICOR [Suspect]
     Indication: HYPERCHOLESTEROLAEMIA
     Dosage: PER ORAL
     Route: 048
     Dates: start: 20020101
  2. LEVOTHYROXINE SODIUM [Concomitant]

REACTIONS (3)
  - FACE OEDEMA [None]
  - PHOTOSENSITIVITY REACTION [None]
  - SYSTEMIC LUPUS ERYTHEMATOSUS [None]
